FAERS Safety Report 4423340-9 (Version None)
Quarter: 2004Q3

REPORT INFORMATION
  Report Type: 
  Country: None (occurrence: None)
  Receive Date: 20040806
  Receipt Date: 20040729
  Transmission Date: 20050211
  Serious: Yes (Other)
  Sender: FDA-Public Use
  Company Number: 002222

PATIENT
  Age: 14 Year
  Sex: Female
  Weight: 63.5 kg

DRUGS (1)
  1. CLARAVIS [Suspect]
     Indication: ACNE
     Dosage: 60.00 MG, QD, ORAL
     Route: 048
     Dates: start: 20031023, end: 20040102

REACTIONS (4)
  - ACNE [None]
  - CHEILITIS [None]
  - DEPRESSION [None]
  - SUICIDAL IDEATION [None]
